FAERS Safety Report 18617983 (Version 1)
Quarter: 2020Q4

REPORT INFORMATION
  Report Type: Spontaneous
  Country: US (occurrence: US)
  Receive Date: 20201215
  Receipt Date: 20201215
  Transmission Date: 20210114
  Serious: Yes (Other)
  Sender: FDA-Public Use
  Company Number: US-SA-2020SA355219

PATIENT

DRUGS (22)
  1. XANAX [Concomitant]
     Active Substance: ALPRAZOLAM
  2. DEXAMETHASONE. [Concomitant]
     Active Substance: DEXAMETHASONE
  3. NATURE-THROID [Concomitant]
     Active Substance: THYROID, PORCINE
  4. LOTEMAX [Concomitant]
     Active Substance: LOTEPREDNOL ETABONATE
  5. BACLOFEN. [Concomitant]
     Active Substance: BACLOFEN
  6. PLAVIX [Concomitant]
     Active Substance: CLOPIDOGREL BISULFATE
  7. LIDOCAINE. [Concomitant]
     Active Substance: LIDOCAINE
  8. XIIDRA [Concomitant]
     Active Substance: LIFITEGRAST
  9. MIRALAX [Concomitant]
     Active Substance: POLYETHYLENE GLYCOL 3350
  10. AMBIEN [Concomitant]
     Active Substance: ZOLPIDEM TARTRATE
  11. ALENDRONATE [Concomitant]
     Active Substance: ALENDRONATE SODIUM
  12. RESTASIS [Concomitant]
     Active Substance: CYCLOSPORINE
  13. PROAIR HFA [Concomitant]
     Active Substance: ALBUTEROL SULFATE
  14. SPIRIVA [Concomitant]
     Active Substance: TIOTROPIUM BROMIDE MONOHYDRATE
  15. VALACYCLOVIR [Concomitant]
     Active Substance: VALACYCLOVIR HYDROCHLORIDE
  16. POTASSIUM [Concomitant]
     Active Substance: POTASSIUM
  17. AUBAGIO [Suspect]
     Active Substance: TERIFLUNOMIDE
     Indication: MULTIPLE SCLEROSIS
     Dosage: 14 MG, QD
     Route: 048
     Dates: start: 20160108, end: 202011
  18. BOTOX [Concomitant]
     Active Substance: ONABOTULINUMTOXINA
  19. CELEXA [CELECOXIB] [Concomitant]
     Active Substance: CELECOXIB
  20. PANTOPRAZOLE [Concomitant]
     Active Substance: PANTOPRAZOLE
  21. ATORVASTATIN [Concomitant]
     Active Substance: ATORVASTATIN
  22. MAXALT [Concomitant]
     Active Substance: RIZATRIPTAN BENZOATE

REACTIONS (4)
  - Bronchitis [Unknown]
  - Multiple sclerosis relapse [Unknown]
  - Malaise [Unknown]
  - Product dose omission issue [Unknown]

NARRATIVE: CASE EVENT DATE: 202011
